FAERS Safety Report 9272040 (Version 1)
Quarter: 2013Q2

REPORT INFORMATION
  Report Type: Report from Study
  Country: IS (occurrence: IS)
  Receive Date: 20130506
  Receipt Date: 20130506
  Transmission Date: 20140414
  Serious: Yes (Death, Hospitalization)
  Sender: FDA-Public Use
  Company Number: IS-BAYER-2013-054179

PATIENT
  Age: 77 Year
  Sex: Male

DRUGS (2)
  1. LOW-DOSE ASPIRIN [Suspect]
  2. WARFARIN [Suspect]

REACTIONS (2)
  - Gastric ulcer haemorrhage [Fatal]
  - Cardiac arrest [Fatal]
